APPROVED DRUG PRODUCT: FLURAZEPAM HYDROCHLORIDE
Active Ingredient: FLURAZEPAM HYDROCHLORIDE
Strength: 30MG
Dosage Form/Route: CAPSULE;ORAL
Application: A070563 | Product #001
Applicant: USL PHARMA INC
Approved: Jul 9, 1987 | RLD: No | RS: No | Type: DISCN